FAERS Safety Report 8613080-4 (Version None)
Quarter: 2012Q3

REPORT INFORMATION
  Report Type: 
  Country: None (occurrence: None)
  Receive Date: 20120822
  Receipt Date: 20120807
  Transmission Date: 20120928
  Serious: No
  Sender: FDA-Public Use
  Company Number: US-TEVA-352569USA

PATIENT
  Sex: Female
  Weight: 47.67 kg

DRUGS (8)
  1. L-METHYLFOLATE [Concomitant]
     Indication: DEPRESSION
     Route: 048
  2. DESVENLAFAXINE [Concomitant]
     Indication: DEPRESSION
     Route: 048
  3. ESTRADIOL [Concomitant]
     Route: 062
  4. MIRTAZAPINE [Concomitant]
     Indication: DEPRESSION
     Route: 048
  5. AZILECT [Suspect]
     Indication: PARKINSON'S DISEASE
     Dosage: UNKNOWN DAILY
     Route: 048
  6. DONEPEZIL HCL [Concomitant]
     Route: 048
  7. ENTACAPONE [Concomitant]
     Indication: PARKINSON'S DISEASE
     Route: 048
  8. CARBIDOPA AND LEVODOPA [Concomitant]
     Indication: PARKINSON'S DISEASE
     Route: 048

REACTIONS (1)
  - DYSKINESIA [None]
